FAERS Safety Report 4625497-3 (Version None)
Quarter: 2005Q2

REPORT INFORMATION
  Report Type: 
  Country: None (occurrence: None)
  Receive Date: 20050401
  Receipt Date: 20050307
  Transmission Date: 20051028
  Serious: Yes (Hospitalization)
  Sender: FDA-Public Use
  Company Number: JP-ABBOTT-05P-087-0293195-00

PATIENT
  Sex: Female

DRUGS (16)
  1. KLARICID [Suspect]
     Indication: NASOPHARYNGITIS
     Route: 048
     Dates: start: 20040722, end: 20040811
  2. KLARICID [Suspect]
     Route: 048
     Dates: start: 20040714, end: 20040721
  3. RIFAMPICIN [Suspect]
     Indication: ATYPICAL MYCOBACTERIAL INFECTION
     Route: 048
     Dates: start: 20040722, end: 20040811
  4. RIFAMPICIN [Suspect]
     Route: 048
     Dates: start: 19930201
  5. ETHAMBUTOL HCL [Suspect]
     Indication: ATYPICAL MYCOBACTERIAL INFECTION
     Route: 048
     Dates: start: 20040722, end: 20040811
  6. ISONIAZID [Concomitant]
     Indication: ATYPICAL MYCOBACTERIAL INFECTION
     Route: 048
     Dates: start: 19930201
  7. AURANOFIN [Concomitant]
     Indication: DRUG USE FOR UNKNOWN INDICATION
  8. RANITIDINE HYDROCHLORIDE [Concomitant]
     Indication: DRUG USE FOR UNKNOWN INDICATION
  9. PREDNISOLONE [Concomitant]
     Indication: DRUG USE FOR UNKNOWN INDICATION
  10. AMBROXOL HYDROCHLORIDE [Concomitant]
     Indication: DRUG USE FOR UNKNOWN INDICATION
  11. PLAUNOTOL [Concomitant]
     Indication: DRUG USE FOR UNKNOWN INDICATION
  12. TIQUIZIUM BROMIDE [Concomitant]
     Indication: DRUG USE FOR UNKNOWN INDICATION
  13. CALCITRIOL [Concomitant]
     Indication: DRUG USE FOR UNKNOWN INDICATION
  14. CHINESE HERBAL MEDICATION [Concomitant]
     Indication: DRUG USE FOR UNKNOWN INDICATION
  15. DEXTROMETHORPHAN HYDROBROMIDE [Concomitant]
     Indication: DRUG USE FOR UNKNOWN INDICATION
  16. L-METHYLCYSTIENE HYDROCHLORIDE [Concomitant]
     Indication: DRUG USE FOR UNKNOWN INDICATION

REACTIONS (6)
  - BONE MARROW DEPRESSION [None]
  - HAEMORRHAGE SUBCUTANEOUS [None]
  - ORAL INTAKE REDUCED [None]
  - PLATELET COUNT DECREASED [None]
  - STOMACH DISCOMFORT [None]
  - THROMBOCYTOPENIC PURPURA [None]
